FAERS Safety Report 18653709 (Version 1)
Quarter: 2020Q4

REPORT INFORMATION
  Report Type: Spontaneous
  Country: US (occurrence: US)
  Receive Date: 20201223
  Receipt Date: 20201223
  Transmission Date: 20210114
  Serious: No
  Sender: FDA-Public Use
  Company Number: US-HORIZON-2020HZN02598

PATIENT
  Age: 21 Year
  Sex: Female

DRUGS (2)
  1. VITAMIN D2 50 MCG CAPSULE [Concomitant]
  2. TEPEZZA [Suspect]
     Active Substance: TEPROTUMUMAB-TRBW
     Indication: TOXIC GOITRE
     Dosage: 1300 MG INTRAVENOUSLY EVERY 3 WEEKS
     Route: 050

REACTIONS (1)
  - Alopecia [Unknown]
